FAERS Safety Report 20104635 (Version 2)
Quarter: 2021Q4

REPORT INFORMATION
  Report Type: Spontaneous
  Country: CN (occurrence: CN)
  Receive Date: 20211123
  Receipt Date: 20211125
  Transmission Date: 20220303
  Serious: Yes (Other)
  Sender: FDA-Public Use
  Company Number: CN-JNJFOC-20211135891

PATIENT
  Age: 2 Year
  Sex: Male
  Weight: 10 kg

DRUGS (4)
  1. ACETAMINOPHEN [Suspect]
     Active Substance: ACETAMINOPHEN
     Indication: Pyrexia
     Route: 048
     Dates: start: 20211026, end: 20211026
  2. CEFTRIAXONE SODIUM [Suspect]
     Active Substance: CEFTRIAXONE SODIUM
     Indication: Hepatic function abnormal
     Route: 041
     Dates: start: 20211028, end: 20211102
  3. CEFTRIAXONE SODIUM [Suspect]
     Active Substance: CEFTRIAXONE SODIUM
     Indication: Kawasaki^s disease
  4. ASPIRIN [Suspect]
     Active Substance: ASPIRIN
     Indication: Kawasaki^s disease
     Route: 048
     Dates: start: 20211028, end: 20211101

REACTIONS (1)
  - Hepatocellular injury [Recovering/Resolving]

NARRATIVE: CASE EVENT DATE: 20211101
